FAERS Safety Report 9582456 (Version 1)
Quarter: 2013Q4

REPORT INFORMATION
  Report Type: Spontaneous
  Country: US (occurrence: US)
  Receive Date: 20131002
  Receipt Date: 20131002
  Transmission Date: 20140711
  Serious: No
  Sender: FDA-Public Use
  Company Number: US-AMGEN-USASP2013040748

PATIENT
  Age: 59 Year
  Sex: Female
  Weight: 76.19 kg

DRUGS (7)
  1. ENBREL [Suspect]
     Indication: PRODUCT USED FOR UNKNOWN INDICATION
     Dosage: 50 MG, QWK
     Route: 058
  2. CYCLOBENZAPRIN HCL [Concomitant]
     Dosage: 10 MG, UNK
  3. MUPIROCIN [Concomitant]
     Dosage: 2 %, UNK
  4. OMEPRAZOLE [Concomitant]
     Dosage: 20 MG, UNK
  5. PLAQUENIL                          /00072602/ [Concomitant]
     Dosage: UNK
  6. LISINOPRIL + HIDROCLOROTIAZIDA [Concomitant]
     Dosage: UNK 10-12.5
  7. TYLENOL                            /00020001/ [Concomitant]
     Dosage: 325 MG, UNK

REACTIONS (1)
  - Night sweats [Unknown]
